FAERS Safety Report 20844033 (Version 1)
Quarter: 2022Q2

REPORT INFORMATION
  Report Type: Spontaneous
  Country: DE (occurrence: DE)
  Receive Date: 20220518
  Receipt Date: 20220518
  Transmission Date: 20220721
  Serious: Yes (Hospitalization, Other)
  Sender: FDA-Public Use
  Company Number: DE-BRISTOL-MYERS SQUIBB COMPANY-BMS-2022-038271

PATIENT
  Age: 83 Year
  Sex: Female
  Weight: 74 kg

DRUGS (2)
  1. HYDREA [Suspect]
     Active Substance: HYDROXYUREA
     Indication: Platelet count increased
     Dosage: 1 ATU 1-0-1
     Route: 048
     Dates: start: 2006
  2. ASPIRIN [Concomitant]
     Active Substance: ASPIRIN
     Indication: Product used for unknown indication
     Route: 065

REACTIONS (8)
  - Skin cancer [Recovered/Resolved with Sequelae]
  - Bowen^s disease [Unknown]
  - Rash papular [Recovered/Resolved with Sequelae]
  - Erythema [Recovered/Resolved with Sequelae]
  - Squamous cell carcinoma of skin [Unknown]
  - Actinic keratosis [Recovered/Resolved with Sequelae]
  - Basal cell carcinoma [Recovered/Resolved with Sequelae]
  - Intentional product use issue [Unknown]

NARRATIVE: CASE EVENT DATE: 20170101
